FAERS Safety Report 7512535-3 (Version None)
Quarter: 2011Q2

REPORT INFORMATION
  Report Type: 
  Country: None (occurrence: None)
  Receive Date: 20110525
  Receipt Date: 20110525
  Transmission Date: 20111010
  Serious: Yes (Disabling)
  Sender: FDA-Public Use
  Company Number: None

PATIENT
  Age: 65 Year
  Sex: Male
  Weight: 88.4514 kg

DRUGS (2)
  1. AZITHROMYCIN [Suspect]
     Indication: RESPIRATORY TRACT INFECTION
     Dosage: ONE TABLET PER DAY PO
     Route: 048
     Dates: start: 20110509, end: 20110513
  2. AZITHROMYCIN [Suspect]
     Indication: SINUSITIS
     Dosage: ONE TABLET PER DAY PO
     Route: 048
     Dates: start: 20110509, end: 20110513

REACTIONS (3)
  - PNEUMONIA [None]
  - PRODUCT FORMULATION ISSUE [None]
  - DRUG INEFFECTIVE [None]
